FAERS Safety Report 7092160-1 (Version None)
Quarter: 2010Q4

REPORT INFORMATION
  Report Type: 
  Country: None (occurrence: None)
  Receive Date: 20101109
  Receipt Date: 20101027
  Transmission Date: 20110411
  Serious: Yes (Life-Threatening, Other)
  Sender: FDA-Public Use
  Company Number: ES-ELI_LILLY_AND_COMPANY-ES201010006557

PATIENT
  Sex: Female
  Weight: 101 kg

DRUGS (3)
  1. FORTEO [Suspect]
     Indication: OSTEOPOROSIS
     Dosage: 20 UG, DAILY (1/D)
     Route: 058
     Dates: start: 20091123, end: 20100801
  2. ASPIRIN [Concomitant]
     Dosage: UNK, UNKNOWN
     Route: 048
  3. AMILORIDE HCL AND HYDROCHLOROTHIAZIDE [Concomitant]
     Indication: ARRHYTHMIA
     Dosage: 1 D/F, DAILY (1/D)
     Route: 048

REACTIONS (3)
  - COLON CANCER [None]
  - ILEUS PARALYTIC [None]
  - WOUND DEHISCENCE [None]
